FAERS Safety Report 12521022 (Version 1)
Quarter: 2016Q3

REPORT INFORMATION
  Report Type: Spontaneous
  Country: IT (occurrence: IT)
  Receive Date: 20160701
  Receipt Date: 20160701
  Transmission Date: 20161109
  Serious: Yes (Hospitalization, Other)
  Sender: FDA-Public Use
  Company Number: IT-SA-2016SA120782

PATIENT
  Age: 82 Year
  Sex: Female

DRUGS (8)
  1. FENTANYL. [Interacting]
     Active Substance: FENTANYL
     Indication: ISCHAEMIC LIMB PAIN
     Route: 065
     Dates: start: 20150528, end: 20150602
  2. VANCOMYCIN [Interacting]
     Active Substance: VANCOMYCIN
     Indication: STAPHYLOCOCCAL INFECTION
     Route: 065
     Dates: start: 20150522
  3. FENTANYL. [Interacting]
     Active Substance: FENTANYL
     Indication: ISCHAEMIC LIMB PAIN
     Dosage: 100 MCG 1 TABLET UPGRADEABLE TO 200 MCG.?TRANSMUCOSAL ORAL
     Dates: start: 20150602, end: 20150602
  4. LEVOFLOXACIN. [Interacting]
     Active Substance: LEVOFLOXACIN
     Indication: STAPHYLOCOCCAL INFECTION
     Dosage: MAINTENANCE DOSE
     Route: 048
     Dates: start: 20150522
  5. LEVOFLOXACIN. [Interacting]
     Active Substance: LEVOFLOXACIN
     Indication: STAPHYLOCOCCAL INFECTION
     Dosage: LOADING DOSE
     Route: 048
     Dates: start: 20150521, end: 20150521
  6. RIFAMPICIN [Suspect]
     Active Substance: RIFAMPIN
     Indication: STAPHYLOCOCCAL INFECTION
     Route: 042
     Dates: start: 20150521
  7. FENTANYL. [Interacting]
     Active Substance: FENTANYL
     Indication: ISCHAEMIC LIMB PAIN
     Route: 065
     Dates: start: 20150521, end: 20150528
  8. VANCOMYCIN [Interacting]
     Active Substance: VANCOMYCIN
     Indication: STAPHYLOCOCCAL INFECTION
     Route: 065
     Dates: start: 20150521, end: 20150521

REACTIONS (9)
  - Miosis [Recovered/Resolved]
  - Overdose [Unknown]
  - Altered state of consciousness [Recovered/Resolved]
  - Somnolence [Recovered/Resolved]
  - Hallucination [Recovered/Resolved]
  - Status epilepticus [Recovered/Resolved]
  - Drug interaction [Unknown]
  - Sopor [Recovered/Resolved]
  - Tremor [Recovered/Resolved]

NARRATIVE: CASE EVENT DATE: 2015
